FAERS Safety Report 4476572-8 (Version None)
Quarter: 2004Q4

REPORT INFORMATION
  Report Type: 
  Country: None (occurrence: None)
  Receive Date: 20041012
  Receipt Date: 20041001
  Transmission Date: 20050328
  Serious: Yes (Other)
  Sender: FDA-Public Use
  Company Number: 163-20785-04100109

PATIENT

DRUGS (2)
  1. THALOMID [Suspect]
     Indication: GLIOBLASTOMA MULTIFORME
     Dosage: 200MG QD W/TITRATION OF 100-200MG D Q 1-2 WKS TO A AMX OF 1200MG, QD, ORAL
     Route: 048
  2. RADIATION THERAPY [Suspect]
     Indication: GLIOBLASTOMA MULTIFORME
     Dosage: TOTAL DOSE 60GY OVER 6 WEEKS,

REACTIONS (7)
  - ALOPECIA [None]
  - CONFUSIONAL STATE [None]
  - DEPRESSED LEVEL OF CONSCIOUSNESS [None]
  - PRURITUS [None]
  - RADIATION INJURY [None]
  - RECALL PHENOMENON [None]
  - VERTIGO [None]
